FAERS Safety Report 21846524 (Version 1)
Quarter: 2023Q1

REPORT INFORMATION
  Report Type: Spontaneous
  Country: US (occurrence: US)
  Receive Date: 20230111
  Receipt Date: 20230111
  Transmission Date: 20230417
  Serious: No
  Sender: FDA-Public Use
  Company Number: US-009507513-2212USA011236

PATIENT
  Sex: Male

DRUGS (1)
  1. NOXAFIL [Suspect]
     Active Substance: POSACONAZOLE
     Indication: Infective aneurysm
     Dosage: UNK
     Route: 048

REACTIONS (1)
  - Product use in unapproved indication [Unknown]
